FAERS Safety Report 10511799 (Version 1)
Quarter: 2014Q3

REPORT INFORMATION
  Report Type: Spontaneous
  Country: US (occurrence: None)
  Receive Date: 20140926
  Receipt Date: 20140926
  Transmission Date: 20150326
  Serious: No
  Sender: FDA-Public Use
  Company Number: 1000068409

PATIENT
  Age: 83 Year
  Sex: Female

DRUGS (10)
  1. XANAX(ALPRAZOLAM)(ALPRAZOLAM) [Concomitant]
  2. PRAVASTATIN(PRAVASTATIN)(PRAVASTATIN) [Concomitant]
  3. SPIRONOLACTONE(SPIRONOLACTONE)(SPIRONOLACTONE) 1) - ONGOING [Concomitant]
  4. ESTRACE(ESTRADIOL)(ESTRADIOL) [Concomitant]
  5. LINZESS [Suspect]
     Active Substance: LINACLOTIDE
     Indication: BOWEL MOVEMENT IRREGULARITY
     Route: 048
     Dates: start: 20140617
  6. ARICEPT(DONEPEZIL HYDROCHLORIDE)(DONEPEZIL HYDROCHLORIDE) [Concomitant]
  7. PROTONIX (PANTOPRAZOLE SODIUM SESQUIHYDRATE) (PANTOPRAZOLE SODIUM SESQUIHYDRATE) [Concomitant]
  8. OXYBUTYNIN (OXYBUTYNIN) (OXYBUTYNIN) [Concomitant]
  9. LEXAPRO(ESCITALOPRAM OXALATE)(ESCITALOPRAM OXALATE) :1) - ONGOING [Concomitant]
  10. NEURONTIN(GABAPENTIN)(GABAPENTIN) [Concomitant]

REACTIONS (2)
  - Diarrhoea [None]
  - Off label use [None]

NARRATIVE: CASE EVENT DATE: 20140617
